FAERS Safety Report 13514501 (Version 10)
Quarter: 2019Q4

REPORT INFORMATION
  Report Type: Report from Study
  Country: DE (occurrence: DE)
  Receive Date: 20170504
  Receipt Date: 20191003
  Transmission Date: 20200122
  Serious: Yes (Death, Life-Threatening, Hospitalization, Other)
  Sender: FDA-Public Use
  Company Number: DE-BRISTOL-MYERS SQUIBB COMPANY-BMS-2017-037167

PATIENT
  Age: 48 Year
  Sex: Female
  Weight: 73 kg

DRUGS (38)
  1. TRAMADOL. [Concomitant]
     Active Substance: TRAMADOL
     Indication: INTERCOSTAL NEURALGIA
     Dosage: 100 MG, QD
     Route: 042
     Dates: start: 20170422, end: 20170422
  2. NOVALGIN                           /00169801/ [Concomitant]
     Active Substance: ACETAMINOPHEN\CAFFEINE\PROPYPHENAZONE
     Indication: PRODUCT USED FOR UNKNOWN INDICATION
     Dosage: 40 GTT, QID
     Route: 048
     Dates: start: 20170424
  3. VALORON N                          /00628301/ [Concomitant]
     Active Substance: NALOXONE HYDROCHLORIDE\TILIDINE HYDROCHLORIDE
     Indication: PAIN MANAGEMENT
     Dosage: 50 MG, QD
     Route: 048
     Dates: start: 20170422, end: 20170427
  4. TAVOR (LORAZEPAM) [Concomitant]
     Active Substance: LORAZEPAM
     Indication: PRODUCT USED FOR UNKNOWN INDICATION
     Dosage: 2.5 MG, DAILY
     Route: 048
     Dates: start: 20170503
  5. ORAMORPH [Concomitant]
     Active Substance: MORPHINE SULFATE
     Indication: PAIN MANAGEMENT
     Dosage: 10 MG, PRN
     Route: 048
     Dates: start: 20170423, end: 20170425
  6. LYRICA [Concomitant]
     Active Substance: PREGABALIN
     Indication: DEPRESSION
     Dosage: 50 MG, QD
     Route: 048
     Dates: start: 20170423
  7. IPILIMUMAB [Suspect]
     Active Substance: IPILIMUMAB
     Indication: MALIGNANT MELANOMA
     Dosage: 1 DF, Q3WK
     Route: 065
     Dates: start: 20170405, end: 20170602
  8. LEVOTHYROXIN [Concomitant]
     Active Substance: LEVOTHYROXINE
     Indication: PRODUCT USED FOR UNKNOWN INDICATION
     Dosage: 125 ?G, QD
     Route: 048
     Dates: start: 2007
  9. IBUPROFEN. [Concomitant]
     Active Substance: IBUPROFEN
     Indication: PAIN MANAGEMENT
     Dosage: 600 MG, TID
     Route: 048
     Dates: start: 20170422
  10. MIDAZOLAM [Concomitant]
     Active Substance: MIDAZOLAM HYDROCHLORIDE
     Indication: INTERCOSTAL NEURALGIA
     Dosage: 1 G, QD
     Route: 042
     Dates: start: 20170422, end: 20170422
  11. MOVICOL [Concomitant]
     Active Substance: POLYETHYLENE GLYCOL 3350\POTASSIUM CHLORIDE\SODIUM BICARBONATE\SODIUM CHLORIDE
     Indication: CONSTIPATION
     Dosage: 13.81 G, QD
     Route: 048
     Dates: start: 20170423
  12. MCP [Concomitant]
     Active Substance: METOCLOPRAMIDE HYDROCHLORIDE
     Indication: INTERCOSTAL NEURALGIA
     Dosage: 10 MG, QD
     Route: 042
     Dates: start: 20170422, end: 20170422
  13. PANTOZOL [Concomitant]
     Active Substance: PANTOPRAZOLE SODIUM
     Indication: PROPHYLAXIS
     Dosage: 20 MG, QD
     Route: 048
     Dates: start: 20170422
  14. ADALAT [Concomitant]
     Active Substance: NIFEDIPINE
     Indication: HYPERTENSION
     Dosage: 5 MG, PRN
     Route: 048
     Dates: start: 20170423
  15. PYOLYSIN                           /01205901/ [Concomitant]
     Indication: VIRAL INFECTION
     Dosage: 1 DF, PRN
     Route: 061
     Dates: start: 1984
  16. CELEBREX [Concomitant]
     Active Substance: CELECOXIB
     Indication: PRODUCT USED FOR UNKNOWN INDICATION
     Dosage: 200 MG, PRN
     Route: 048
     Dates: start: 2007
  17. MIDAZOLAM [Concomitant]
     Active Substance: MIDAZOLAM HYDROCHLORIDE
     Indication: ANXIOLYTIC THERAPY
     Dosage: 5 MG, PRN
     Route: 042
     Dates: start: 20170530
  18. NOVALGIN                           /00169801/ [Concomitant]
     Active Substance: ACETAMINOPHEN\CAFFEINE\PROPYPHENAZONE
     Indication: PAIN MANAGEMENT
     Dosage: 30 GTT, TID
     Route: 048
     Dates: start: 20170422, end: 20170423
  19. DUROGESIC [Concomitant]
     Active Substance: FENTANYL
     Indication: PAIN MANAGEMENT
     Dosage: 12 ?G, EVERY 2 DAYS
     Route: 062
     Dates: start: 20170423, end: 20170427
  20. ZOPICLONE [Concomitant]
     Active Substance: ZOPICLONE
     Indication: SLEEP DISORDER
     Dosage: 3.75 MG, PRN
     Route: 048
     Dates: start: 20170423
  21. TAVOR (LORAZEPAM) [Concomitant]
     Active Substance: LORAZEPAM
     Indication: RESTLESSNESS
     Dosage: 1 MG, PRN
     Route: 048
     Dates: start: 20170423, end: 20170502
  22. ABSTRAL [Concomitant]
     Active Substance: FENTANYL CITRATE
     Indication: PAIN MANAGEMENT
     Dosage: 100 ?G, PRN
     Route: 048
     Dates: start: 20170426, end: 20170503
  23. DEXAMETHASON                       /00016001/ [Concomitant]
     Active Substance: DEXAMETHASONE
     Indication: METASTASES TO CENTRAL NERVOUS SYSTEM
     Dosage: 8 MG, TID
     Route: 042
     Dates: start: 20170423, end: 20170427
  24. CLINDAMYCIN. [Concomitant]
     Active Substance: CLINDAMYCIN
     Indication: INFECTION
     Dosage: 600 MG, TID
     Route: 042
     Dates: start: 20170502
  25. NACL [Concomitant]
     Active Substance: SODIUM CHLORIDE
     Indication: HYPERCALCAEMIA
     Dosage: 1 L, 5 TIMES A DAY
     Route: 042
     Dates: start: 20170423, end: 20170428
  26. TOREM                              /01036501/ [Concomitant]
     Active Substance: TORSEMIDE
     Indication: HYPERCALCAEMIA
     Dosage: 40 MG, QD
     Route: 048
     Dates: start: 20170429, end: 20170501
  27. NIVOLUMAB [Suspect]
     Active Substance: NIVOLUMAB
     Indication: MALIGNANT MELANOMA
     Dosage: 1 DF, Q3WK
     Route: 065
     Dates: start: 20170405, end: 20170602
  28. DUROGESIC [Concomitant]
     Active Substance: FENTANYL
     Indication: PRODUCT USED FOR UNKNOWN INDICATION
     Dosage: 25 ?G, EVERY 2 DAYS
     Route: 062
     Dates: start: 20170428, end: 20170501
  29. DUROGESIC [Concomitant]
     Active Substance: FENTANYL
     Indication: PRODUCT USED FOR UNKNOWN INDICATION
     Dosage: 50 ?G, EVERY 2 DAYS
     Route: 062
     Dates: start: 20170502
  30. LASIX [Concomitant]
     Active Substance: FUROSEMIDE
     Indication: HYPERCALCAEMIA
     Dosage: 40 MG, TID
     Route: 042
     Dates: start: 20170423, end: 20170428
  31. NACL [Concomitant]
     Active Substance: SODIUM CHLORIDE
     Indication: PRODUCT USED FOR UNKNOWN INDICATION
     Dosage: 1 L, TID
     Route: 042
     Dates: start: 20170429
  32. MORPHIN                            /00036302/ [Concomitant]
     Active Substance: MORPHINE SULFATE
     Indication: PAIN MANAGEMENT
     Dosage: 10 MG, PRN
     Route: 042
     Dates: start: 20170503
  33. KETANEST                           /00171202/ [Concomitant]
     Indication: PAIN MANAGEMENT
     Dosage: 25 MG, PRN
     Route: 042
     Dates: start: 20170503
  34. DEXAMETHASON                       /00016001/ [Concomitant]
     Active Substance: DEXAMETHASONE
     Indication: PRODUCT USED FOR UNKNOWN INDICATION
     Dosage: 4 MG, TID
     Route: 042
     Dates: start: 20170428, end: 20170501
  35. DEXAMETHASON                       /00016001/ [Concomitant]
     Active Substance: DEXAMETHASONE
     Indication: PRODUCT USED FOR UNKNOWN INDICATION
     Dosage: 2 MG, TID
     Route: 042
     Dates: start: 20170502
  36. LIDOCAIN                           /00033401/ [Concomitant]
     Active Substance: LIDOCAINE
     Indication: CENTRAL VENOUS CATHETERISATION
     Dosage: 10 MG, ONCE
     Route: 058
     Dates: start: 20170515, end: 20170515
  37. IBANDRONATE [Concomitant]
     Active Substance: IBANDRONATE SODIUM
     Indication: METASTASES TO BONE
     Dosage: 3 MG, QD
     Route: 042
     Dates: start: 20170426, end: 20170426
  38. TOREM                              /01036501/ [Concomitant]
     Active Substance: TORSEMIDE
     Indication: PRODUCT USED FOR UNKNOWN INDICATION
     Dosage: 10 MG, QD
     Route: 048
     Dates: start: 20170502

REACTIONS (4)
  - General physical health deterioration [Fatal]
  - Femur fracture [Unknown]
  - Rhabdomyolysis [Unknown]
  - Malignant neoplasm progression [Fatal]

NARRATIVE: CASE EVENT DATE: 20170423
